FAERS Safety Report 6931570-7 (Version None)
Quarter: 2010Q3

REPORT INFORMATION
  Report Type: 
  Country: None (occurrence: None)
  Receive Date: 20100819
  Receipt Date: 20100805
  Transmission Date: 20110219
  Serious: Yes (Hospitalization, Other)
  Sender: FDA-Public Use
  Company Number: US-ELI_LILLY_AND_COMPANY-US201008001934

PATIENT
  Sex: Female

DRUGS (17)
  1. FORTEO [Suspect]
     Indication: OSTEOPOROSIS
     Dosage: 20 UG, DAILY (1/D)
     Dates: start: 20100416
  2. CITRACAL [Concomitant]
     Dosage: 1 D/F, 2/D
  3. ASACOL [Concomitant]
     Dosage: 400 MG, 2/D
  4. POTASSIUM [Concomitant]
     Dosage: 10 MEQ, 2/D
  5. POTASSIUM [Concomitant]
     Dosage: 40 MEQ, DAILY (1/D)
  6. PREDNISONE [Concomitant]
     Dosage: 5 MG, DAILY (1/D)
  7. FOLIC ACID [Concomitant]
     Dosage: 1 UG, DAILY (1/D)
  8. XANAX [Concomitant]
     Dosage: 0.5 MG, AS NEEDED
  9. NEXIUM [Concomitant]
     Dosage: 40 MG, DAILY (1/D)
  10. EFFEXOR [Concomitant]
  11. PERCOCET [Concomitant]
     Dosage: 10/325 D/F, 1 TO 2 PILLS EVERY FOUR HOURS AS NEEDED
  12. SINTENYL [Concomitant]
     Dosage: 1000 UG, QOD
     Route: 062
  13. OXYGEN [Concomitant]
     Dosage: 1 D/F, AS NEEDED
  14. LASIX [Concomitant]
  15. DIAZIDE [Concomitant]
  16. ZAROXOLYN [Concomitant]
  17. METOLAZONE [Concomitant]

REACTIONS (6)
  - BLOOD SODIUM DECREASED [None]
  - CONTUSION [None]
  - ELECTROLYTE IMBALANCE [None]
  - FALL [None]
  - LOSS OF CONSCIOUSNESS [None]
  - SOMNOLENCE [None]
